FAERS Safety Report 7072669-7 (Version None)
Quarter: 2010Q4

REPORT INFORMATION
  Report Type: 
  Country: None (occurrence: None)
  Receive Date: 20101029
  Receipt Date: 20100225
  Transmission Date: 20110411
  Serious: No
  Sender: FDA-Public Use
  Company Number: A0846689A

PATIENT
  Age: 64 Year
  Sex: Female

DRUGS (2)
  1. ADVAIR DISKUS 100/50 [Suspect]
     Indication: PRODUCT USED FOR UNKNOWN INDICATION
     Dosage: 1PUFF PER DAY
     Route: 055
     Dates: start: 20091107, end: 20100128
  2. PROTONIX [Concomitant]

REACTIONS (4)
  - DYSPHONIA [None]
  - OROPHARYNGEAL PAIN [None]
  - VOCAL CORD DISORDER [None]
  - VOCAL CORD INFLAMMATION [None]
